FAERS Safety Report 9123371 (Version 2)
Quarter: 2013Q3

REPORT INFORMATION
  Report Type: Spontaneous
  Country: US (occurrence: US)
  Receive Date: 20130227
  Receipt Date: 20130719
  Transmission Date: 20140515
  Serious: Yes (Other)
  Sender: FDA-Public Use
  Company Number: US-BAYER-2013-025071

PATIENT
  Age: 32 Year
  Sex: Female
  Weight: 90.7 kg

DRUGS (3)
  1. YASMIN [Suspect]
     Indication: PREMENSTRUAL SYNDROME
     Dosage: UNK
     Dates: start: 2009, end: 2010
  2. MIFEPRISTONE [Concomitant]
     Dosage: UNK
     Route: 048
     Dates: start: 20101029
  3. MISOPROSTOL [Concomitant]
     Dosage: UNK
     Route: 048
     Dates: start: 20101029

REACTIONS (1)
  - Pulmonary embolism [None]
